FAERS Safety Report 5992820-7 (Version None)
Quarter: 2008Q4

REPORT INFORMATION
  Report Type: 
  Country: None (occurrence: None)
  Receive Date: 20081211
  Receipt Date: 20081204
  Transmission Date: 20090506
  Serious: Yes (Other)
  Sender: FDA-Public Use
  Company Number: US-JNJCH-2008056463

PATIENT
  Age: 41 Year
  Sex: Female
  Weight: 52.2 kg

DRUGS (2)
  1. VISINE-A [Suspect]
     Indication: HYPERSENSITIVITY
     Dosage: TEXT:ONE DROP ONCE
     Route: 047
     Dates: start: 20081122, end: 20081122
  2. XANAX [Concomitant]
     Indication: PANIC DISORDER
     Dosage: TEXT:1 OR 2 A DAY
     Route: 048

REACTIONS (7)
  - APPLICATION SITE IRRITATION [None]
  - EYE PAIN [None]
  - EYE PRURITUS [None]
  - OCULAR HYPERAEMIA [None]
  - PRODUCT TAMPERING [None]
  - VISION BLURRED [None]
  - VISUAL FIELD DEFECT [None]
